FAERS Safety Report 11936865 (Version 1)
Quarter: 2016Q1

REPORT INFORMATION
  Report Type: Spontaneous
  Country: US (occurrence: US)
  Receive Date: 20160121
  Receipt Date: 20160121
  Transmission Date: 20160526
  Serious: No
  Sender: FDA-Public Use
  Company Number: US-TARO-2015TAR00526

PATIENT
  Age: 60 Year
  Sex: Female
  Weight: 66.21 kg

DRUGS (3)
  1. NYSTATIN AND TRIAMCINOLONE ACETONIDE [Suspect]
     Active Substance: NYSTATIN\TRIAMCINOLONE ACETONIDE
     Indication: HAEMORRHOIDS
     Dosage: 1 DOSAGE UNITS, UNK
     Route: 061
     Dates: start: 20150528, end: 20150529
  2. NOVOLOG INSULIN [Concomitant]
     Dosage: UNK
  3. OTHER UNSPECIFIED MEDICATIONS [Concomitant]
     Active Substance: UNSPECIFIED INGREDIENT

REACTIONS (3)
  - Pain [Recovered/Resolved]
  - Anorectal discomfort [Recovered/Resolved]
  - Off label use [Recovered/Resolved]

NARRATIVE: CASE EVENT DATE: 20150528
